FAERS Safety Report 18500667 (Version 1)
Quarter: 2020Q4

REPORT INFORMATION
  Report Type: Spontaneous
  Country: US (occurrence: US)
  Receive Date: 20201112
  Receipt Date: 20201112
  Transmission Date: 20210114
  Serious: Yes (Death)
  Sender: FDA-Public Use
  Company Number: None

PATIENT
  Age: 70 Year
  Sex: Female

DRUGS (11)
  1. HYDRALAZINE [Concomitant]
     Active Substance: HYDRALAZINE HYDROCHLORIDE
     Dates: start: 20191014, end: 20201105
  2. RETACRIT [Suspect]
     Active Substance: EPOETIN ALFA-EPBX
     Indication: ANAEMIA
     Dosage: ?          OTHER FREQUENCY:1ML Q 2 WEEKS;?
     Route: 058
     Dates: start: 20200721, end: 20201105
  3. CALCITRIOL 0.25MCG [Concomitant]
     Dates: start: 20190103, end: 20201105
  4. VITAMIN D 50,000 [Concomitant]
     Dates: start: 20190104, end: 20201104
  5. AMLODIPINE [Concomitant]
     Active Substance: AMLODIPINE BESYLATE
     Dates: start: 20190904, end: 20201105
  6. LEVETIRACETAM 500MG [Concomitant]
     Active Substance: LEVETIRACETAM
     Dates: start: 20190104, end: 20201105
  7. METOPROLOL ER 100MG [Concomitant]
     Dates: start: 20190103, end: 20201105
  8. FUROSEMIDE 40MG [Concomitant]
     Active Substance: FUROSEMIDE
     Dates: start: 20190729, end: 20201105
  9. POTASSIUM 10MEQ [Concomitant]
     Dates: start: 20181224, end: 20201105
  10. ROSUVASTATIN 10MG [Concomitant]
     Active Substance: ROSUVASTATIN
     Dates: start: 20190103, end: 20201105
  11. HEMOCYTE PLUS [Concomitant]
     Dates: start: 20181224, end: 20201105

REACTIONS (1)
  - Death [None]

NARRATIVE: CASE EVENT DATE: 20201105
